FAERS Safety Report 8216211-3 (Version None)
Quarter: 2012Q1

REPORT INFORMATION
  Report Type: 
  Country: None (occurrence: None)
  Receive Date: 20120316
  Receipt Date: 20120306
  Transmission Date: 20120608
  Serious: Yes (Other)
  Sender: FDA-Public Use
  Company Number: GB-GLAXOSMITHKLINE-B0786158A

PATIENT
  Age: 49 Year
  Sex: Male

DRUGS (3)
  1. PAROXETINE HCL [Suspect]
     Indication: ANXIETY
     Route: 048
     Dates: start: 19940101
  2. STATINS [Concomitant]
  3. DIAZEPAM [Concomitant]
     Dosage: 4MG PER DAY
     Route: 048

REACTIONS (6)
  - DEPRESSION [None]
  - PRODUCT QUALITY ISSUE [None]
  - FEELING ABNORMAL [None]
  - ANXIETY [None]
  - SUICIDAL IDEATION [None]
  - DIARRHOEA [None]
